FAERS Safety Report 6414086-6 (Version None)
Quarter: 2009Q4

REPORT INFORMATION
  Report Type: 
  Country: None (occurrence: None)
  Receive Date: 20091022
  Receipt Date: 20091022
  Transmission Date: 20100525
  Serious: Yes (Hospitalization, Other)
  Sender: FDA-Public Use
  Company Number: None

PATIENT
  Age: 72 Year
  Sex: Male

DRUGS (8)
  1. ZETIA [Suspect]
     Dosage: 10 MG PO QAM
     Route: 048
  2. MINOXIDIL [Concomitant]
  3. CLONIDINE [Concomitant]
  4. OMEPRAZOLE [Concomitant]
  5. ZETIA [Concomitant]
  6. HYDROCHLOROTHIAZIDE [Concomitant]
  7. COLCHICINE [Concomitant]
  8. ASPIRIN [Concomitant]

REACTIONS (1)
  - RHABDOMYOLYSIS [None]
